FAERS Safety Report 11494054 (Version 1)
Quarter: 2015Q3

REPORT INFORMATION
  Report Type: Spontaneous
  Country: US (occurrence: US)
  Receive Date: 20150911
  Receipt Date: 20150911
  Transmission Date: 20151125
  Serious: Yes (Other)
  Sender: FDA-Public Use
  Company Number: US-ROCHE-1020779

PATIENT
  Age: 42 Year
  Sex: Female

DRUGS (5)
  1. NICOTINE TRANSDERMAL SYSTEM [Concomitant]
     Active Substance: NICOTINE
  2. ZOVIRAX [Concomitant]
     Active Substance: ACYCLOVIR
     Route: 065
  3. PEGASYS [Suspect]
     Active Substance: PEGINTERFERON ALFA-2A
     Indication: HEPATITIS C
     Route: 065
     Dates: start: 20111106, end: 20111202
  4. RIBAVIRIN. [Concomitant]
     Active Substance: RIBAVIRIN
     Indication: PRODUCT USED FOR UNKNOWN INDICATION
     Dosage: 3 DF IN THE MORNING AND 2 DF IN THE EVENING
     Route: 065
  5. TELAPREVIR [Concomitant]
     Active Substance: TELAPREVIR
     Indication: PRODUCT USED FOR UNKNOWN INDICATION
     Dosage: 2 TABLET 3 TIMES A DAY
     Route: 065

REACTIONS (2)
  - Vision blurred [Recovered/Resolved]
  - Seizure [Recovered/Resolved]

NARRATIVE: CASE EVENT DATE: 20111127
